FAERS Safety Report 20603389 (Version 1)
Quarter: 2022Q1

REPORT INFORMATION
  Report Type: Spontaneous
  Country: None (occurrence: US)
  Receive Date: 20220316
  Receipt Date: 20220316
  Transmission Date: 20220423
  Serious: No
  Sender: FDA-Public Use
  Company Number: US-Breckenridge Pharmaceutical, Inc.-2126846

PATIENT
  Sex: Female
  Weight: 47.273 kg

DRUGS (2)
  1. AZELASTINE HYDROCHLORIDE [Suspect]
     Active Substance: AZELASTINE HYDROCHLORIDE
     Indication: Hypersensitivity
     Route: 045
  2. FLUTICASONE PROPIONATE NASAL [Concomitant]
     Active Substance: FLUTICASONE PROPIONATE

REACTIONS (6)
  - Abdominal discomfort [Unknown]
  - Fatigue [Unknown]
  - Malaise [Unknown]
  - Weight decreased [Unknown]
  - Product primary packaging issue [Unknown]
  - Product odour abnormal [Unknown]
